FAERS Safety Report 6115277-4 (Version None)
Quarter: 2009Q1

REPORT INFORMATION
  Report Type: 
  Country: None (occurrence: None)
  Receive Date: 20090313
  Receipt Date: 20090309
  Transmission Date: 20090719
  Serious: Yes (Other)
  Sender: FDA-Public Use
  Company Number: AU-ASTRAZENECA-2009AP01765

PATIENT
  Sex: Female

DRUGS (1)
  1. CRESTOR [Suspect]
     Route: 048
     Dates: start: 20080301

REACTIONS (5)
  - DIARRHOEA [None]
  - LETHARGY [None]
  - MALAISE [None]
  - PAIN IN EXTREMITY [None]
  - VARICOSE VEIN [None]
